FAERS Safety Report 24354953 (Version 4)
Quarter: 2025Q3

REPORT INFORMATION
  Report Type: Report from Study
  Country: US (occurrence: US)
  Receive Date: 20240923
  Receipt Date: 20250919
  Transmission Date: 20251020
  Serious: No
  Sender: SUNOVION
  Company Number: US-SUMITOMO PHARMA SWITZERLAND GMBH-2024SPA002611

PATIENT
  Age: 77 Year
  Sex: Male

DRUGS (13)
  1. ORGOVYX [Suspect]
     Active Substance: RELUGOLIX
     Indication: Prostate cancer
     Dosage: 360 MG, SINGLE
     Route: 048
  2. ORGOVYX [Suspect]
     Active Substance: RELUGOLIX
     Dosage: 120 MG, QD
     Route: 048
     Dates: start: 20241101
  3. CITALOPRAM [Concomitant]
     Active Substance: CITALOPRAM
  4. LISINOPRIL AND HYDROCHLOROTHIAZIDE [Concomitant]
     Active Substance: HYDROCHLOROTHIAZIDE\LISINOPRIL
  5. ALEVE [Concomitant]
     Active Substance: NAPROXEN SODIUM
  6. MUCINEX [Concomitant]
     Active Substance: GUAIFENESIN
  7. CLARITIN [Concomitant]
     Active Substance: LORATADINE
  8. HYALURONIC ACID [Concomitant]
     Active Substance: HYALURONIC ACID
  9. VITAMIN B [Concomitant]
     Active Substance: VITAMIN B
  10. NUBEQA [Concomitant]
     Active Substance: DAROLUTAMIDE
     Indication: Prostate cancer
  11. VITAMIN B12 [Concomitant]
     Active Substance: CYANOCOBALAMIN
  12. ATORVASTATIN [Concomitant]
     Active Substance: ATORVASTATIN
  13. CANNABIDIOL\HERBALS [Concomitant]
     Active Substance: CANNABIDIOL\HERBALS

REACTIONS (3)
  - Somnolence [Unknown]
  - Hot flush [Unknown]
  - Insomnia [Unknown]
